FAERS Safety Report 12083432 (Version 1)
Quarter: 2016Q1

REPORT INFORMATION
  Report Type: Spontaneous
  Country: US (occurrence: None)
  Receive Date: 20160216
  Receipt Date: 20160216
  Transmission Date: 20160526
  Serious: No
  Sender: FDA-Public Use
  Company Number: None

PATIENT
  Age: 4 Year
  Sex: Male
  Weight: 19.05 kg

DRUGS (1)
  1. TRIAMCINOLONE [Suspect]
     Active Substance: TRIAMCINOLONE
     Indication: DERMATITIS ATOPIC
     Dosage: FREQUENCY - TWICE DAILY?ROUTE - APPLIED TO A SURFACE, USUALLY THE SKIN
     Route: 061
     Dates: start: 20120419, end: 20151015

REACTIONS (4)
  - Oedema [None]
  - Eczema [None]
  - Condition aggravated [None]
  - Urticaria [None]

NARRATIVE: CASE EVENT DATE: 20151022
